FAERS Safety Report 19771368 (Version 3)
Quarter: 2022Q1

REPORT INFORMATION
  Report Type: Spontaneous
  Country: JP (occurrence: JP)
  Receive Date: 20210831
  Receipt Date: 20220103
  Transmission Date: 20220423
  Serious: Yes (Death, Other)
  Sender: FDA-Public Use
  Company Number: JP-JAZZ-2021-JP-016003

PATIENT
  Age: 38 Year
  Sex: Male

DRUGS (2)
  1. DEFITELIO [Suspect]
     Active Substance: DEFIBROTIDE SODIUM
     Indication: Venoocclusive liver disease
     Dosage: 25 MILLIGRAM/KILOGRAM, QD
     Route: 042
     Dates: start: 20210225, end: 20210303
  2. ACOALAN [Concomitant]
     Indication: Product used for unknown indication
     Dosage: UNK
     Dates: end: 20210301

REACTIONS (4)
  - Gastrointestinal haemorrhage [Fatal]
  - Hypotension [Fatal]
  - Venoocclusive liver disease [Fatal]
  - Disease progression [Fatal]

NARRATIVE: CASE EVENT DATE: 20210227
